FAERS Safety Report 20649340 (Version 1)
Quarter: 2022Q1

REPORT INFORMATION
  Report Type: Spontaneous
  Country: US (occurrence: US)
  Receive Date: 20220329
  Receipt Date: 20220329
  Transmission Date: 20220424
  Serious: Yes (Death, Other)
  Sender: FDA-Public Use
  Company Number: US-GLAXOSMITHKLINE-US2022GSK055779

PATIENT
  Sex: Female

DRUGS (4)
  1. ZANTAC [Suspect]
     Active Substance: RANITIDINE HYDROCHLORIDE
     Indication: Gastric disorder
     Dosage: UNKNOWN AT THIS TIME
     Route: 065
     Dates: start: 201301, end: 201701
  2. ZANTAC [Suspect]
     Active Substance: RANITIDINE HYDROCHLORIDE
     Indication: Gastric disorder
     Dosage: UNKNOWN AT THIS TIME
     Route: 065
     Dates: start: 201301, end: 201701
  3. ZANTAC [Suspect]
     Active Substance: RANITIDINE HYDROCHLORIDE
     Indication: Gastric disorder
     Dosage: UNKNOWN AT THIS TIME
     Route: 065
     Dates: start: 201301, end: 201701
  4. RANITIDINE [Suspect]
     Active Substance: RANITIDINE
     Indication: Gastric disorder
     Dosage: UNKNOWN AT THIS TIME
     Route: 065
     Dates: start: 201301, end: 201701

REACTIONS (4)
  - Neoplasm malignant [Fatal]
  - Gastric cancer [Unknown]
  - Small intestine carcinoma [Unknown]
  - Hepatic cirrhosis [Unknown]
